FAERS Safety Report 22173474 (Version 1)
Quarter: 2023Q2

REPORT INFORMATION
  Report Type: Spontaneous
  Country: FI (occurrence: FI)
  Receive Date: 20230404
  Receipt Date: 20230404
  Transmission Date: 20230721
  Serious: Yes (Hospitalization)
  Sender: FDA-Public Use
  Company Number: None

PATIENT
  Age: 67 Year
  Sex: Female

DRUGS (2)
  1. MABTHERA [Suspect]
     Active Substance: RITUXIMAB
     Indication: Lymphoma
     Route: 058
     Dates: start: 20220121, end: 20220121
  2. CYTARABINE [Concomitant]
     Active Substance: CYTARABINE
     Indication: Lymphoma
     Dates: start: 20220121, end: 20220122

REACTIONS (4)
  - Erysipelas [Recovered/Resolved]
  - Neutropenia [Recovered/Resolved]
  - Injection site erythema [Recovered/Resolved]
  - Pyrexia [Recovered/Resolved]

NARRATIVE: CASE EVENT DATE: 20220127
